FAERS Safety Report 15929103 (Version 1)
Quarter: 2019Q1

REPORT INFORMATION
  Report Type: Spontaneous
  Country: FR (occurrence: FR)
  Receive Date: 20190206
  Receipt Date: 20190206
  Transmission Date: 20190417
  Serious: Yes (Hospitalization, Other)
  Sender: FDA-Public Use
  Company Number: FR-TEVA-2019-FR-1006472

PATIENT
  Age: 37 Year
  Sex: Female
  Weight: 96 kg

DRUGS (4)
  1. UVEDOSE [Concomitant]
     Active Substance: CHOLECALCIFEROL
     Indication: PRODUCT USED FOR UNKNOWN INDICATION
     Route: 065
     Dates: start: 20121119
  2. AVONEX [Suspect]
     Active Substance: INTERFERON BETA-1A
     Indication: MULTIPLE SCLEROSIS
     Route: 058
     Dates: start: 20080211, end: 20100503
  3. TECFIDERA [Suspect]
     Active Substance: DIMETHYL FUMARATE
     Indication: MULTIPLE SCLEROSIS
     Dosage: 240 MILLIGRAM DAILY;
     Route: 048
     Dates: start: 20140902, end: 20150620
  4. COPAXONE [Suspect]
     Active Substance: GLATIRAMER ACETATE
     Route: 058
     Dates: start: 20100504

REACTIONS (2)
  - Keratoacanthoma [Unknown]
  - Anaplastic large cell lymphoma T- and null-cell types [Not Recovered/Not Resolved]

NARRATIVE: CASE EVENT DATE: 20150520
